FAERS Safety Report 14401152 (Version 1)
Quarter: 2018Q1

REPORT INFORMATION
  Report Type: Spontaneous
  Country: US (occurrence: US)
  Receive Date: 20180113
  Receipt Date: 20180113
  Transmission Date: 20180509
  Serious: No
  Sender: FDA-Public Use
  Company Number: None

PATIENT
  Age: 67 Year
  Sex: Female

DRUGS (1)
  1. CAPECITABINE TAB 500MG [Suspect]
     Active Substance: CAPECITABINE

REACTIONS (6)
  - Stomatitis [None]
  - Blister [None]
  - Skin exfoliation [None]
  - Gait disturbance [None]
  - Skin discolouration [None]
  - Dysstasia [None]

NARRATIVE: CASE EVENT DATE: 20180113
